FAERS Safety Report 5693155-2 (Version None)
Quarter: 2008Q2

REPORT INFORMATION
  Report Type: 
  Country: None (occurrence: None)
  Receive Date: 20080402
  Receipt Date: 20080402
  Transmission Date: 20081010
  Serious: Yes (Hospitalization)
  Sender: FDA-Public Use
  Company Number: None

PATIENT
  Age: 74 Year
  Sex: Female

DRUGS (10)
  1. VANCOMYCIN [Suspect]
     Indication: BACTERAEMIA
     Dosage: VANCOMYCIN 1 GRAM DAILY IV BOLUS
     Route: 040
     Dates: start: 20080309, end: 20080319
  2. VANCOMYCIN [Suspect]
     Indication: ENDOCARDITIS
     Dosage: VANCOMYCIN 1 GRAM DAILY IV BOLUS
     Route: 040
     Dates: start: 20080309, end: 20080319
  3. DIGOXIN [Concomitant]
  4. DILTIAZEM CD [Concomitant]
  5. ADVAIR HFA [Concomitant]
  6. FUROSEMIDE [Concomitant]
  7. RANITIDINE [Concomitant]
  8. SIMVASTATIN [Concomitant]
  9. SPIRONOLACTONE [Concomitant]
  10. FLUTICASONE [Concomitant]

REACTIONS (3)
  - CANDIDURIA [None]
  - CHILLS [None]
  - PYREXIA [None]
